FAERS Safety Report 10251373 (Version 1)
Quarter: 2014Q2

REPORT INFORMATION
  Report Type: Other
  Country: JP (occurrence: JP)
  Receive Date: 20140622
  Receipt Date: 20140622
  Transmission Date: 20141212
  Serious: Yes (Life-Threatening, Other)
  Sender: FDA-Public Use
  Company Number: JP-TAKEDA-2014TJP007681

PATIENT
  Age: 64 Year
  Sex: Female
  Weight: 61.2 kg

DRUGS (9)
  1. TAKEPRON OD TABLETS 30 [Suspect]
     Indication: GASTROINTESTINAL DISORDER
     Dosage: 30 MG, QD
     Route: 048
     Dates: start: 20131216, end: 20140123
  2. NAPROXEN [Suspect]
     Dosage: 100 MG, BID
     Route: 048
     Dates: start: 20131224, end: 20140123
  3. NORVASC [Concomitant]
     Route: 048
  4. URSO                               /00465701/ [Concomitant]
     Route: 048
  5. ALDACTONE-A [Concomitant]
     Route: 048
  6. AMINOLEBAN EN [Concomitant]
     Route: 048
  7. MONILAC [Concomitant]
     Route: 048
  8. ALL OTHER THERAPEUTIC PRODUCTS [Concomitant]
     Route: 050
  9. HIRUDOID                           /00723701/ [Concomitant]
     Route: 062

REACTIONS (2)
  - White blood cell count decreased [Recovered/Resolved]
  - Agranulocytosis [Recovered/Resolved]
